FAERS Safety Report 7094015-5 (Version None)
Quarter: 2010Q4

REPORT INFORMATION
  Report Type: 
  Country: None (occurrence: None)
  Receive Date: 20101101
  Receipt Date: 20101025
  Transmission Date: 20110411
  Serious: Yes (Death, Other)
  Sender: FDA-Public Use
  Company Number: 011615

PATIENT
  Age: 3 Year

DRUGS (3)
  1. BUSULFEX [Suspect]
  2. THIOTEPA [Suspect]
  3. CICLOFOSFAMIDE(VADEMCUM) [Suspect]

REACTIONS (2)
  - INFECTION [None]
  - LEUKAEMIA RECURRENT [None]
